FAERS Safety Report 6343632-6 (Version None)
Quarter: 2009Q3

REPORT INFORMATION
  Report Type: 
  Country: None (occurrence: None)
  Receive Date: 20090904
  Receipt Date: 20090904
  Transmission Date: 20100115
  Serious: Yes (Life-Threatening)
  Sender: FDA-Public Use
  Company Number: None

PATIENT
  Sex: Female
  Weight: 61.2356 kg

DRUGS (1)
  1. ACIPHEX [Suspect]
     Indication: GASTRIC PH DECREASED
     Dosage: 20 MG TWICE DAY
     Dates: start: 20090824

REACTIONS (3)
  - HEADACHE [None]
  - PARAESTHESIA [None]
  - THROAT TIGHTNESS [None]
